FAERS Safety Report 20511394 (Version 2)
Quarter: 2022Q1

REPORT INFORMATION
  Report Type: Spontaneous
  Country: US (occurrence: US)
  Receive Date: 20220224
  Receipt Date: 20220224
  Transmission Date: 20220424
  Serious: Yes (Other)
  Sender: FDA-Public Use
  Company Number: US-CELGENE-USA-20220206388

PATIENT
  Sex: Female

DRUGS (1)
  1. INREBIC [Suspect]
     Active Substance: FEDRATINIB HYDROCHLORIDE
     Indication: Myelofibrosis
     Dosage: 400 MILLIGRAM
     Route: 048
     Dates: start: 20201103

REACTIONS (5)
  - Diverticulitis [Unknown]
  - Rash pruritic [Unknown]
  - Gastrointestinal pain [Unknown]
  - Fatigue [Unknown]
  - Asthenia [Unknown]
